FAERS Safety Report 9881761 (Version 1)
Quarter: 2014Q1

REPORT INFORMATION
  Report Type: Spontaneous
  Country: US (occurrence: US)
  Receive Date: 20140207
  Receipt Date: 20140207
  Transmission Date: 20141002
  Serious: No
  Sender: FDA-Public Use
  Company Number: US-GILEAD-2014-0093983

PATIENT
  Sex: 0
  Weight: 83.45 kg

DRUGS (4)
  1. COMPLERA [Suspect]
     Indication: HIV INFECTION
     Dosage: UNK
     Route: 065
     Dates: start: 201208
  2. TRUVADA [Suspect]
     Indication: HIV INFECTION
     Dosage: UNK
     Route: 065
     Dates: end: 201208
  3. ISENTRESS [Concomitant]
     Indication: HIV INFECTION
     Dosage: UNK
     Route: 065
     Dates: end: 201208
  4. SUSTIVA [Concomitant]
     Indication: HIV INFECTION
     Dosage: UNK
     Route: 065
     Dates: end: 201208

REACTIONS (2)
  - CD4 lymphocytes decreased [Unknown]
  - Blood creatine phosphokinase increased [Unknown]
